FAERS Safety Report 7209977-2 (Version None)
Quarter: 2011Q1

REPORT INFORMATION
  Report Type: 
  Country: None (occurrence: None)
  Receive Date: 20110105
  Receipt Date: 20101229
  Transmission Date: 20110831
  Serious: No
  Sender: FDA-Public Use
  Company Number: US-BIOGENIDEC-2010BI045238

PATIENT
  Age: 28 Year
  Sex: Female

DRUGS (2)
  1. ANTIVERT [Concomitant]
     Indication: DIZZINESS
  2. TYSABRI [Suspect]
     Indication: MULTIPLE SCLEROSIS
     Route: 042
     Dates: start: 20100701

REACTIONS (5)
  - FALL [None]
  - HYPOAESTHESIA [None]
  - MULTIPLE SCLEROSIS RELAPSE [None]
  - JOINT SPRAIN [None]
  - DIZZINESS [None]
